FAERS Safety Report 14254696 (Version 1)
Quarter: 2017Q4

REPORT INFORMATION
  Report Type: Spontaneous
  Country: US (occurrence: US)
  Receive Date: 20171206
  Receipt Date: 20171206
  Transmission Date: 20180321
  Serious: Yes (Other)
  Sender: FDA-Public Use
  Company Number: US-SUN PHARMACEUTICAL INDUSTRIES LTD-2017US-156338

PATIENT
  Age: 52 Year
  Sex: Female

DRUGS (6)
  1. PAROXETINE. [Suspect]
     Active Substance: PAROXETINE
     Indication: TACHYPHRENIA
     Dosage: UNK
     Route: 065
  2. PAROXETINE. [Suspect]
     Active Substance: PAROXETINE
     Indication: DEPRESSION
  3. PAROXETINE. [Suspect]
     Active Substance: PAROXETINE
     Indication: ANXIETY
  4. PAROXETINE. [Suspect]
     Active Substance: PAROXETINE
     Indication: OBSESSIVE THOUGHTS
  5. PAROXETINE. [Suspect]
     Active Substance: PAROXETINE
     Indication: PANIC ATTACK
  6. PAROXETINE. [Suspect]
     Active Substance: PAROXETINE
     Indication: FATIGUE

REACTIONS (3)
  - Anosmia [Recovered/Resolved]
  - Hyposmia [Recovered/Resolved]
  - Cranial nerve disorder [Recovered/Resolved]
